FAERS Safety Report 9968496 (Version 1)
Quarter: 2014Q1

REPORT INFORMATION
  Report Type: Spontaneous
  Country: US (occurrence: US)
  Receive Date: 20140306
  Receipt Date: 20140306
  Transmission Date: 20141002
  Serious: No
  Sender: FDA-Public Use
  Company Number: US-ABBVIE-13P-163-1143135-00

PATIENT
  Age: 59 Year
  Sex: Female
  Weight: 76.27 kg

DRUGS (17)
  1. HUMIRA [Suspect]
     Indication: RHEUMATOID ARTHRITIS
     Dates: start: 20130530
  2. ACTHAR [Concomitant]
     Indication: SYSTEMIC LUPUS ERYTHEMATOSUS
  3. HYDROXYCHLOROQUINE [Concomitant]
     Indication: SYSTEMIC LUPUS ERYTHEMATOSUS
  4. RANITIDINE [Concomitant]
     Indication: GASTROOESOPHAGEAL REFLUX DISEASE
  5. FOLIC ACID [Concomitant]
     Indication: RHEUMATOID ARTHRITIS
  6. DICLOFENAC [Concomitant]
     Indication: RHEUMATOID ARTHRITIS
  7. LEUCOVORIN [Concomitant]
     Indication: RHEUMATOID ARTHRITIS
  8. ATELVLIA [Concomitant]
     Indication: RHEUMATOID ARTHRITIS
  9. METHOTREXATE [Concomitant]
     Indication: RHEUMATOID ARTHRITIS
  10. METHOCARBAMOL [Concomitant]
     Indication: FIBROMYALGIA
  11. METHOCARBAMOL [Concomitant]
     Indication: SCIATICA
  12. LYRICA [Concomitant]
     Indication: SCIATICA
  13. LYRICA [Concomitant]
     Indication: FIBROMYALGIA
  14. CYMBALTA [Concomitant]
     Indication: FIBROMYALGIA
  15. CYMBALTA [Concomitant]
     Indication: SCIATICA
  16. FLONASE [Concomitant]
     Indication: RHINITIS ALLERGIC
  17. SPIRIVA [Concomitant]
     Indication: CHRONIC OBSTRUCTIVE PULMONARY DISEASE

REACTIONS (4)
  - Wrong technique in drug usage process [Recovered/Resolved]
  - Incorrect route of drug administration [Recovered/Resolved]
  - Incorrect dose administered [Unknown]
  - Injection site haemorrhage [Recovered/Resolved]
